FAERS Safety Report 17824902 (Version 1)
Quarter: 2020Q2

REPORT INFORMATION
  Report Type: Spontaneous
  Country: US (occurrence: US)
  Receive Date: 20200526
  Receipt Date: 20200526
  Transmission Date: 20200714
  Serious: No
  Sender: FDA-Public Use
  Company Number: US-SA-2020SA134562

PATIENT
  Sex: Male

DRUGS (1)
  1. ALLEGRA-D 24 HOUR [Suspect]
     Active Substance: FEXOFENADINE HYDROCHLORIDE\PSEUDOEPHEDRINE HYDROCHLORIDE
     Indication: LACRIMATION INCREASED
     Dosage: 1 DF
     Route: 065
     Dates: start: 20200519

REACTIONS (3)
  - Lacrimation increased [Unknown]
  - Drug effect less than expected [Unknown]
  - Abdominal discomfort [Unknown]
